FAERS Safety Report 8192200-2 (Version None)
Quarter: 2012Q1

REPORT INFORMATION
  Report Type: 
  Country: None (occurrence: None)
  Receive Date: 20120307
  Receipt Date: 20120223
  Transmission Date: 20120608
  Serious: Yes (Hospitalization)
  Sender: FDA-Public Use
  Company Number: CH-ELI_LILLY_AND_COMPANY-CH201202007402

PATIENT
  Age: 30 Year
  Sex: Male

DRUGS (7)
  1. RISPERDAL [Concomitant]
     Indication: DELUSIONAL DISORDER, UNSPECIFIED TYPE
     Dosage: 1 MG, QD
     Route: 048
     Dates: start: 20111224, end: 20111224
  2. ZYPREXA [Suspect]
     Dosage: 5 MG, QD
     Route: 048
     Dates: start: 20111224, end: 20111231
  3. ZYPREXA [Suspect]
     Indication: DELUSIONAL DISORDER, UNSPECIFIED TYPE
     Dosage: 5 MG, QD
     Route: 048
     Dates: start: 20111124, end: 20111125
  4. XEPLION                            /05724801/ [Concomitant]
     Dosage: 100 MG, SINGLE
     Route: 030
     Dates: start: 20111231, end: 20111231
  5. ZYPREXA [Suspect]
     Dosage: 10 MG, QD
     Route: 048
     Dates: start: 20111126, end: 20111213
  6. ZYPREXA [Suspect]
     Dosage: 15 MG, QD
     Route: 048
     Dates: start: 20111214, end: 20111223
  7. XEPLION                            /05724801/ [Concomitant]
     Indication: DELUSIONAL DISORDER, UNSPECIFIED TYPE
     Dosage: 150 MG, SINGLE
     Route: 030
     Dates: start: 20111224, end: 20111224

REACTIONS (15)
  - ANTICHOLINERGIC SYNDROME [None]
  - EOSINOPHILIA [None]
  - MYALGIA [None]
  - UPPER RESPIRATORY TRACT INFECTION [None]
  - CHEST DISCOMFORT [None]
  - DYSURIA [None]
  - SOMNOLENCE [None]
  - NAUSEA [None]
  - INSOMNIA [None]
  - HEART RATE INCREASED [None]
  - VISION BLURRED [None]
  - WEIGHT INCREASED [None]
  - DIZZINESS [None]
  - DYSPNOEA [None]
  - RESTLESSNESS [None]
